FAERS Safety Report 10248641 (Version 1)
Quarter: 2014Q2

REPORT INFORMATION
  Report Type: Report from Study
  Country: US (occurrence: US)
  Receive Date: 20140620
  Receipt Date: 20140620
  Transmission Date: 20141212
  Serious: Yes (Hospitalization)
  Sender: FDA-Public Use
  Company Number: PHEH2014US012407

PATIENT
  Sex: Male

DRUGS (10)
  1. TOBI PODHALER [Suspect]
     Indication: CYSTIC FIBROSIS
     Dosage: 112 MG, BID
     Route: 055
  2. PREDNISONE [Concomitant]
     Dosage: UNK UKN, UNK
  3. PREDNISONE [Concomitant]
     Dosage: UNK UKN, UNK
  4. ALBUTEROL [Concomitant]
     Dosage: UNK UKN, UNK
  5. ADVAIR [Concomitant]
     Dosage: UNK UKN, UNK
  6. VITAMIN D3 [Concomitant]
     Dosage: UNK UKN, UNK
  7. PULMOZYME [Concomitant]
     Dosage: UNK UKN, UNK
  8. PREVACID [Concomitant]
     Dosage: UNK UKN, UNK
  9. CREON [Concomitant]
     Dosage: UNK UKN, UNK
  10. CIPRO//CIPROFLOXACIN [Concomitant]
     Dosage: UNK UKN, UNK

REACTIONS (3)
  - Rhinovirus infection [Unknown]
  - Cystic fibrosis [Unknown]
  - Condition aggravated [Unknown]
